FAERS Safety Report 7542950-3 (Version None)
Quarter: 2011Q2

REPORT INFORMATION
  Report Type: 
  Country: None (occurrence: None)
  Receive Date: 20110613
  Receipt Date: 20110531
  Transmission Date: 20111010
  Serious: Yes (Other)
  Sender: FDA-Public Use
  Company Number: PHHY2011US47357

PATIENT
  Age: 67 Year
  Sex: Female

DRUGS (2)
  1. LESCOL [Suspect]
     Dosage: 20 MG, QD
  2. FLAXSEED OIL [Concomitant]

REACTIONS (2)
  - COELIAC DISEASE [None]
  - CONSTIPATION [None]
